FAERS Safety Report 6057492-4 (Version None)
Quarter: 2009Q1

REPORT INFORMATION
  Report Type: 
  Country: None (occurrence: None)
  Receive Date: 20090126
  Receipt Date: 20090126
  Transmission Date: 20090719
  Serious: Yes (Life-Threatening, Hospitalization, Other)
  Sender: FDA-Public Use
  Company Number: None

PATIENT
  Age: 33 Year
  Sex: Female
  Weight: 86.1834 kg

DRUGS (8)
  1. TOPAMAX [Suspect]
     Dates: start: 20020715, end: 20020901
  2. RISPERDAL [Suspect]
  3. ZYPREXA [Concomitant]
  4. NEURONTIN [Concomitant]
  5. DEPAKOTE [Concomitant]
  6. ADDERALL 10 [Concomitant]
  7. LEXAPRO [Concomitant]
  8. LAMICITAL [Concomitant]

REACTIONS (24)
  - ALOPECIA [None]
  - BIPOLAR I DISORDER [None]
  - CHEST PAIN [None]
  - COORDINATION ABNORMAL [None]
  - DEHYDRATION [None]
  - DEPRESSION [None]
  - DISSOCIATIVE FUGUE [None]
  - DISTURBANCE IN ATTENTION [None]
  - EYE PAIN [None]
  - HALLUCINATION [None]
  - HYPOPHAGIA [None]
  - ILLUSION [None]
  - INSOMNIA [None]
  - LETHARGY [None]
  - NAUSEA [None]
  - OVERDOSE [None]
  - PALPITATIONS [None]
  - PARANOIA [None]
  - POST-TRAUMATIC STRESS DISORDER [None]
  - PSYCHOTIC DISORDER [None]
  - SOCIAL AVOIDANT BEHAVIOUR [None]
  - THINKING ABNORMAL [None]
  - TOOTH DISORDER [None]
  - WEIGHT DECREASED [None]
